FAERS Safety Report 7169873-6 (Version None)
Quarter: 2010Q4

REPORT INFORMATION
  Report Type: 
  Country: None (occurrence: None)
  Receive Date: 20101217
  Receipt Date: 20101214
  Transmission Date: 20110411
  Serious: Yes (Death, Other)
  Sender: FDA-Public Use
  Company Number: PHHY2010DE84967

PATIENT
  Sex: Female

DRUGS (1)
  1. EXJADE [Suspect]
     Dosage: 1000MG DAILY
     Route: 048
     Dates: start: 20100201, end: 20100701

REACTIONS (5)
  - ACUTE MYELOID LEUKAEMIA [None]
  - BLAST CELL COUNT INCREASED [None]
  - DEATH [None]
  - MALIGNANT NEOPLASM PROGRESSION [None]
  - MYELODYSPLASTIC SYNDROME [None]
